FAERS Safety Report 9055552 (Version 1)
Quarter: 2013Q1

REPORT INFORMATION
  Report Type: Spontaneous
  Country: US (occurrence: US)
  Receive Date: 20130206
  Receipt Date: 20130206
  Transmission Date: 20140127
  Serious: Yes (Hospitalization)
  Sender: FDA-Public Use
  Company Number: US-BAYER-2013-014240

PATIENT
  Sex: Female
  Weight: 76.19 kg

DRUGS (1)
  1. ALKA-SELTZER PLUS COLD SPARKLING ORIGINAL [Suspect]
     Dosage: UNK
     Route: 048
     Dates: start: 201212, end: 20130109

REACTIONS (2)
  - Vertigo [Not Recovered/Not Resolved]
  - Tinnitus [Not Recovered/Not Resolved]
